FAERS Safety Report 8340362-6 (Version None)
Quarter: 2012Q2

REPORT INFORMATION
  Report Type: 
  Country: None (occurrence: None)
  Receive Date: 20120507
  Receipt Date: 20120501
  Transmission Date: 20120825
  Serious: Yes (Death)
  Sender: FDA-Public Use
  Company Number: US-PFIZER INC-2012105043

PATIENT
  Sex: Female

DRUGS (1)
  1. CAMPTOSAR [Suspect]
     Indication: ANAL CANCER
     Dosage: 196 MG, UNK
     Dates: start: 20111201

REACTIONS (2)
  - DISEASE PROGRESSION [None]
  - ANAL CANCER [None]
